FAERS Safety Report 4489244-0 (Version None)
Quarter: 2004Q4

REPORT INFORMATION
  Report Type: 
  Country: None (occurrence: None)
  Receive Date: 20041026
  Receipt Date: 20041014
  Transmission Date: 20050328
  Serious: Yes (Life-Threatening)
  Sender: FDA-Public Use
  Company Number: 2004-113695-NL

PATIENT
  Age: 20 Year
  Sex: Female

DRUGS (5)
  1. VECURONIUM BROMIDE [Suspect]
     Indication: INDUCTION OF ANAESTHESIA
     Route: 040
     Dates: start: 20040123, end: 20040123
  2. PROPOFOL [Suspect]
     Indication: ANAESTHESIA
     Route: 041
     Dates: start: 20040123, end: 20040123
  3. REMIFENTANIL HYDROCHLORIDE [Concomitant]
  4. PARALGIN FORTE [Concomitant]
     Indication: POST PROCEDURAL PAIN
     Route: 054
  5. LIDOCAINE [Concomitant]

REACTIONS (6)
  - ANAESTHETIC COMPLICATION [None]
  - ANAPHYLACTIC REACTION [None]
  - GENERALISED ERYTHEMA [None]
  - HYPOTENSION [None]
  - PERIORBITAL OEDEMA [None]
  - TACHYCARDIA [None]
